FAERS Safety Report 9242963 (Version 1)
Quarter: 2013Q2

REPORT INFORMATION
  Report Type: Spontaneous
  Country: US (occurrence: US)
  Receive Date: 20130419
  Receipt Date: 20130419
  Transmission Date: 20140414
  Serious: No
  Sender: FDA-Public Use
  Company Number: US-009507513-1304USA010814

PATIENT
  Sex: Female

DRUGS (2)
  1. ZEGERID OTC CAPSULES [Suspect]
     Indication: DYSPEPSIA
     Dosage: UNK, UNKNOWN
     Route: 048
  2. ZEGERID OTC CAPSULES [Suspect]
     Indication: GASTRITIS

REACTIONS (1)
  - Adverse event [Unknown]
